FAERS Safety Report 13309856 (Version 5)
Quarter: 2022Q4

REPORT INFORMATION
  Report Type: Spontaneous
  Country: US (occurrence: US)
  Receive Date: 20170309
  Receipt Date: 20221013
  Transmission Date: 20230112
  Serious: No
  Sender: FDA-Public Use
  Company Number: US-JNJFOC-20170216889

PATIENT
  Age: 14 Year
  Sex: Male

DRUGS (3)
  1. RISPERDAL [Suspect]
     Active Substance: RISPERIDONE
     Indication: Bipolar disorder
     Dosage: HALF TO 1 TABLET
     Route: 048
     Dates: start: 20070302, end: 20070518
  2. INVEGA [Suspect]
     Active Substance: PALIPERIDONE
     Indication: Bipolar disorder
     Route: 048
     Dates: start: 20070420
  3. INVEGA [Suspect]
     Active Substance: PALIPERIDONE
     Dosage: 3 MG IN THE MORNING AND 6 MG AT BEDTIME
     Route: 048
     Dates: start: 20070622, end: 200709

REACTIONS (6)
  - Emotional disorder [Unknown]
  - Akathisia [Recovered/Resolved]
  - Abnormal weight gain [Unknown]
  - Sluggishness [Unknown]
  - Drug ineffective [Unknown]
  - Gynaecomastia [Unknown]

NARRATIVE: CASE EVENT DATE: 20070101
